FAERS Safety Report 7369313-8 (Version None)
Quarter: 2011Q1

REPORT INFORMATION
  Report Type: 
  Country: None (occurrence: None)
  Receive Date: 20110323
  Receipt Date: 20110314
  Transmission Date: 20110831
  Serious: Yes (Hospitalization)
  Sender: FDA-Public Use
  Company Number: B0705247A

PATIENT
  Age: 74 Year
  Sex: Female
  Weight: 53 kg

DRUGS (6)
  1. AMLODIPINE [Concomitant]
     Indication: HYPERTENSION
     Dosage: 5MG PER DAY
     Route: 048
     Dates: start: 20030101
  2. IBUPROFEN [Concomitant]
     Dosage: 1200MG PER DAY
     Route: 048
     Dates: start: 20101201
  3. LAPATINIB [Suspect]
     Dosage: 1250MG PER DAY
     Route: 048
     Dates: start: 20110205
  4. NOVAMINSULFON [Concomitant]
     Route: 048
     Dates: start: 20101001
  5. CAPECITABINE [Suspect]
     Dosage: 1500MG TWICE PER DAY
     Route: 048
     Dates: start: 20110205
  6. MORPHIUM [Concomitant]
     Dosage: 60MG PER DAY
     Route: 048
     Dates: start: 20110101

REACTIONS (1)
  - SOMNOLENCE [None]
